FAERS Safety Report 7915442-7 (Version None)
Quarter: 2011Q4

REPORT INFORMATION
  Report Type: 
  Country: None (occurrence: None)
  Receive Date: 20111115
  Receipt Date: 20111110
  Transmission Date: 20120403
  Serious: Yes (Hospitalization, Other)
  Sender: FDA-Public Use
  Company Number: PHEH2011US009069

PATIENT
  Sex: Female

DRUGS (9)
  1. LORATADINE [Suspect]
     Dosage: 10 MG, UNK
  2. GILENYA [Suspect]
     Dosage: 0.5 MG, QD
     Route: 048
  3. LEXAPRO [Suspect]
     Dosage: 20 MG, QD
  4. AMBIEN [Suspect]
     Dosage: 5 MG, QD
  5. MIRAPEX [Suspect]
     Dosage: 0.75 MG, (0.25 MG AND 0.5 MG)
  6. NITROFURANTOIN [Suspect]
     Dosage: 100 MG, BID
  7. LYRICA [Suspect]
     Dosage: 100 MG, TID
  8. SINGULAIR [Suspect]
     Dosage: 10 MG, UNK
  9. ADDERALL 5 [Suspect]
     Dosage: 10 MG, BID

REACTIONS (6)
  - FALL [None]
  - MIGRAINE [None]
  - BALANCE DISORDER [None]
  - INFECTION [None]
  - DEHYDRATION [None]
  - URINARY TRACT INFECTION [None]
